FAERS Safety Report 14002477 (Version 1)
Quarter: 2017Q3

REPORT INFORMATION
  Report Type: Spontaneous
  Country: AU (occurrence: AU)
  Receive Date: 20170922
  Receipt Date: 20170922
  Transmission Date: 20171128
  Serious: Yes (Other)
  Sender: FDA-Public Use
  Company Number: AU-SA-2017SA173110

PATIENT
  Age: 71 Year
  Sex: Male

DRUGS (1)
  1. BCG FOR IMMUNOTHERAPY [Suspect]
     Active Substance: BACILLUS CALMETTE-GUERIN ANTIGEN, UNSPECIFIED SUBSTRAIN
     Indication: BLADDER CANCER
     Route: 043

REACTIONS (8)
  - Weight decreased [Recovered/Resolved]
  - Glomerular filtration rate decreased [Recovering/Resolving]
  - Renal tuberculosis [Recovered/Resolved]
  - Disseminated Bacillus Calmette-Guerin infection [Unknown]
  - Pyrexia [Recovered/Resolved]
  - Acute kidney injury [Recovered/Resolved]
  - Night sweats [Recovered/Resolved]
  - Bladder irritation [Unknown]
